FAERS Safety Report 22621527 (Version 1)
Quarter: 2023Q2

REPORT INFORMATION
  Report Type: Spontaneous
  Country: CN (occurrence: CN)
  Receive Date: 20230620
  Receipt Date: 20230620
  Transmission Date: 20230721
  Serious: Yes (Other)
  Sender: FDA-Public Use
  Company Number: None

PATIENT
  Age: 44 Year
  Sex: Female

DRUGS (2)
  1. MANNITOL [Suspect]
     Active Substance: MANNITOL
     Indication: Swelling
     Dosage: 50 G ONCE DAILY, DOSAGE FORM: INJECTION
     Route: 041
     Dates: start: 20230608, end: 20230611
  2. MANNITOL [Suspect]
     Active Substance: MANNITOL
     Indication: Fluid retention

REACTIONS (1)
  - Chest pain [Recovered/Resolved]

NARRATIVE: CASE EVENT DATE: 20230611
